FAERS Safety Report 21624519 (Version 1)
Quarter: 2022Q4

REPORT INFORMATION
  Report Type: Spontaneous
  Country: US (occurrence: US)
  Receive Date: 20221121
  Receipt Date: 20221121
  Transmission Date: 20230112
  Serious: No
  Sender: FDA-Public Use
  Company Number: US-BIOVITRUM-2022US13481

PATIENT
  Sex: Male
  Weight: 14.3 kg

DRUGS (5)
  1. SYNAGIS [Suspect]
     Active Substance: PALIVIZUMAB
     Indication: Antiviral prophylaxis
     Dates: start: 202210
  2. PULMICORT 0.25MG/2ML AMPUL NEB [Concomitant]
  3. BACTRIM 400 MG-800MG TABLET [Concomitant]
  4. LEVALBUTAROL CONCENTRATE [Concomitant]
  5. SIROLIMUS .5 MG/2ML TABLET [Concomitant]

REACTIONS (1)
  - Nasopharyngitis [Unknown]
